FAERS Safety Report 7834379-5 (Version None)
Quarter: 2011Q4

REPORT INFORMATION
  Report Type: 
  Country: None (occurrence: None)
  Receive Date: 20111024
  Receipt Date: 20111017
  Transmission Date: 20120403
  Serious: Yes (Other)
  Sender: FDA-Public Use
  Company Number: PHEH2011US06192

PATIENT
  Sex: Female

DRUGS (1)
  1. TASIGNA [Suspect]
     Dates: start: 20110601

REACTIONS (5)
  - GASTROOESOPHAGEAL REFLUX DISEASE [None]
  - PHARYNGEAL OEDEMA [None]
  - LOSS OF CONSCIOUSNESS [None]
  - CONVULSION [None]
  - DEHYDRATION [None]
